FAERS Safety Report 10661422 (Version 2)
Quarter: 2014Q4

REPORT INFORMATION
  Report Type: Spontaneous
  Country: CN (occurrence: CN)
  Receive Date: 20141218
  Receipt Date: 20141225
  Transmission Date: 20150529
  Serious: Yes (Death)
  Sender: FDA-Public Use
  Company Number: CN-ROCHE-1509905

PATIENT
  Age: 71 Year
  Sex: Male
  Weight: 66 kg

DRUGS (7)
  1. ISOSORBIDE MONONITRATE. [Concomitant]
     Active Substance: ISOSORBIDE MONONITRATE
     Route: 042
     Dates: start: 20141211, end: 20141211
  2. LOW MOLECULAR WEIGHT HEPARINS [Concomitant]
     Route: 048
     Dates: start: 20141211, end: 20141211
  3. BAYASPIRIN [Concomitant]
     Active Substance: ASPIRIN
     Route: 065
     Dates: start: 20141211, end: 20141211
  4. ACTILYSE [Suspect]
     Active Substance: ALTEPLASE
     Indication: ACUTE MYOCARDIAL INFARCTION
     Route: 041
     Dates: start: 20141211, end: 20141211
  5. LOW MOLECULAR WEIGHT HEPARINS [Concomitant]
     Dosage: ID
     Route: 065
     Dates: start: 20141211, end: 20141211
  6. ISOSORBIDE MONONITRATE. [Concomitant]
     Active Substance: ISOSORBIDE MONONITRATE
     Route: 048
     Dates: start: 20141211, end: 20141211
  7. BAYASPIRIN [Concomitant]
     Active Substance: ASPIRIN
     Route: 048
     Dates: start: 20141211, end: 20141211

REACTIONS (9)
  - Respiratory failure [Fatal]
  - Snoring [Fatal]
  - Circulatory collapse [Fatal]
  - Cerebral haemorrhage [Fatal]
  - Gait disturbance [Fatal]
  - Depressed level of consciousness [Fatal]
  - Haematuria [Fatal]
  - Haematemesis [Fatal]
  - Syncope [Fatal]

NARRATIVE: CASE EVENT DATE: 20141211
